FAERS Safety Report 8788019 (Version 1)
Quarter: 2012Q4

REPORT INFORMATION
  Report Type: 
  Country: US (occurrence: US)
  Receive Date: 20120914
  Receipt Date: 20120914
  Transmission Date: 20130627
  Serious: Yes (Hospitalization, Other)
  Sender: FDA-Public Use
  Company Number: US-PFIZER INC-2012221425

PATIENT
  Age: 76 Year
  Sex: Female
  Weight: 56.69 kg

DRUGS (1)
  1. PREMARIN [Suspect]
     Indication: PROGESTERONE DECREASED
     Dosage: 0.3 mg, UNK
     Route: 048
     Dates: start: 2012, end: 201205

REACTIONS (4)
  - Hydrocephalus [Unknown]
  - Cerebrovascular accident [Unknown]
  - Pulmonary mass [Unknown]
  - Drug administration error [Unknown]
